FAERS Safety Report 6523105-8 (Version None)
Quarter: 2009Q4

REPORT INFORMATION
  Report Type: 
  Country: None (occurrence: None)
  Receive Date: 20091222
  Receipt Date: 20091211
  Transmission Date: 20100525
  Serious: Yes (Hospitalization)
  Sender: FDA-Public Use
  Company Number: 236393K09USA

PATIENT
  Age: 64 Year
  Sex: Female
  Weight: 91 kg

DRUGS (3)
  1. REBIF [Suspect]
     Indication: MULTIPLE SCLEROSIS
     Dosage: 44 MCG, 3 IN 1 WEEKS, SUBCUTANEOUS
     Route: 058
     Dates: start: 20080812
  2. ULTRAM [Concomitant]
  3. BACLOFEN [Concomitant]

REACTIONS (4)
  - FALL [None]
  - MOVEMENT DISORDER [None]
  - MUSCLE SPASMS [None]
  - URINARY TRACT INFECTION [None]
